FAERS Safety Report 16638121 (Version 1)
Quarter: 2019Q3

REPORT INFORMATION
  Report Type: Report from Study
  Country: US (occurrence: US)
  Receive Date: 20190726
  Receipt Date: 20190726
  Transmission Date: 20191004
  Serious: Yes (Hospitalization, Other)
  Sender: FDA-Public Use
  Company Number: PHEH2019US030594

PATIENT
  Sex: Female

DRUGS (1)
  1. TASIGNA [Suspect]
     Active Substance: NILOTINIB
     Indication: PRODUCT USED FOR UNKNOWN INDICATION
     Route: 065

REACTIONS (9)
  - Pyrexia [Unknown]
  - Polyp [Unknown]
  - Pulmonary oedema [Unknown]
  - Pain [Unknown]
  - Escherichia infection [Unknown]
  - Infection [Unknown]
  - Device dislocation [Unknown]
  - Constipation [Unknown]
  - Anaemia [Unknown]
